FAERS Safety Report 7497656-6 (Version None)
Quarter: 2011Q2

REPORT INFORMATION
  Report Type: 
  Country: None (occurrence: None)
  Receive Date: 20110523
  Receipt Date: 20110517
  Transmission Date: 20111010
  Serious: Yes (Congenital Anomaly)
  Sender: FDA-Public Use
  Company Number: GXKR2011DE01724

PATIENT
  Sex: Female
  Weight: 3.56 kg

DRUGS (2)
  1. FOLIC ACID [Concomitant]
     Indication: PROPHYLAXIS OF NEURAL TUBE DEFECT
     Dosage: MATERNAL DOSE: 0.8 MG/DAY (GW 7 TO 39.4)
     Route: 064
     Dates: start: 20100103, end: 20100819
  2. INDOMETHACIN [Suspect]
     Indication: ANKYLOSING SPONDYLITIS
     Dosage: MATERNAL DOSE: 75 MG TO 150 MG (4 TIMES UNTIL WEEK 9, THEN CONTINOUSLY UNTIL WEEK 22)
     Route: 064
     Dates: start: 20091115, end: 20100413

REACTIONS (2)
  - NAEVUS FLAMMEUS [None]
  - DRUG EXPOSURE DURING PREGNANCY [None]
